FAERS Safety Report 20665187 (Version 4)
Quarter: 2022Q2

REPORT INFORMATION
  Report Type: Spontaneous
  Country: RO (occurrence: None)
  Receive Date: 20220401
  Receipt Date: 20220427
  Transmission Date: 20220721
  Serious: Yes (Death, Other)
  Sender: FDA-Public Use
  Company Number: 2022A134036

PATIENT
  Sex: Male

DRUGS (1)
  1. DURVALUMAB [Suspect]
     Active Substance: DURVALUMAB
     Indication: Lung squamous cell carcinoma stage III
     Dosage: 1 VIAL OF 500 MG AND 3 VIALS OF 120 MG.
     Route: 042
     Dates: start: 20211026

REACTIONS (3)
  - Death [Fatal]
  - Lung opacity [Unknown]
  - Pneumonia [Unknown]
